FAERS Safety Report 17109932 (Version 2)
Quarter: 2019Q4

REPORT INFORMATION
  Report Type: Spontaneous
  Country: JP (occurrence: JP)
  Receive Date: 20191204
  Receipt Date: 20191209
  Transmission Date: 20200122
  Serious: Yes (Other)
  Sender: FDA-Public Use
  Company Number: JP-GLAXOSMITHKLINE-JP2019217654

PATIENT
  Age: 60 Year
  Sex: Female

DRUGS (3)
  1. LIMAS [Suspect]
     Active Substance: LITHIUM CARBONATE
     Indication: DEPRESSED MOOD
     Dosage: UNK
     Route: 048
     Dates: end: 201912
  2. LAMICTAL [Suspect]
     Active Substance: LAMOTRIGINE
     Dosage: 25 MG, BID MORNING AND EVENING
     Route: 048
     Dates: start: 2019, end: 20191202
  3. LAMICTAL [Suspect]
     Active Substance: LAMOTRIGINE
     Indication: DEPRESSED MOOD
     Dosage: 25 MG, 1D
     Route: 048
     Dates: start: 20191102, end: 2019

REACTIONS (4)
  - Blister [Unknown]
  - Loss of consciousness [Unknown]
  - Rash [Unknown]
  - Product use in unapproved indication [Unknown]

NARRATIVE: CASE EVENT DATE: 2019
